FAERS Safety Report 4533795-7 (Version None)
Quarter: 2004Q4

REPORT INFORMATION
  Report Type: 
  Country: None (occurrence: None)
  Receive Date: 20041214
  Receipt Date: 20040809
  Transmission Date: 20050328
  Serious: No
  Sender: FDA-Public Use
  Company Number: US_0408104719

PATIENT
  Age: 41 Year
  Sex: Male
  Weight: 89 kg

DRUGS (8)
  1. CIALIS [Suspect]
     Indication: BIPOLAR DISORDER
     Dosage: 20 MG
     Dates: start: 20040601
  2. CIALIS [Suspect]
     Indication: DEPRESSION
     Dosage: 20 MG
     Dates: start: 20040601
  3. EFFEXOR [Concomitant]
  4. LAMCITAL (LAMOTRIGINE) [Concomitant]
  5. FISH OIL [Concomitant]
  6. COD-LIVER OIL [Concomitant]
  7. VITAMIN C [Concomitant]
  8. CREATINE [Concomitant]

REACTIONS (2)
  - ACCIDENTAL OVERDOSE [None]
  - MEDICATION ERROR [None]
